FAERS Safety Report 23207533 (Version 1)
Quarter: 2023Q4

REPORT INFORMATION
  Report Type: Spontaneous
  Country: US (occurrence: US)
  Receive Date: 20231120
  Receipt Date: 20231120
  Transmission Date: 20240110
  Serious: No
  Sender: FDA-Public Use
  Company Number: US-BRACCO-2022US05285

PATIENT
  Age: 68 Year
  Sex: Female

DRUGS (4)
  1. LUMASON [Suspect]
     Active Substance: SULFUR HEXAFLUORIDE
     Indication: Ultrasound kidney
     Dosage: 1.8 ML, SINGLE
     Route: 042
     Dates: start: 20221129, end: 20221129
  2. LUMASON [Suspect]
     Active Substance: SULFUR HEXAFLUORIDE
     Indication: Ultrasound kidney
     Dosage: 1.8 ML, SINGLE
     Route: 042
     Dates: start: 20221129, end: 20221129
  3. LUMASON [Suspect]
     Active Substance: SULFUR HEXAFLUORIDE
     Indication: Ultrasound kidney
     Dosage: 1.8 ML, SINGLE
     Route: 042
     Dates: start: 20221129, end: 20221129
  4. ALBUTEROL [Concomitant]
     Active Substance: ALBUTEROL
     Dosage: UNK

REACTIONS (3)
  - Cough [Recovered/Resolved]
  - Dyspnoea [Recovered/Resolved]
  - Hyperhidrosis [Recovered/Resolved]

NARRATIVE: CASE EVENT DATE: 20221129
